FAERS Safety Report 5164184-2 (Version None)
Quarter: 2006Q4

REPORT INFORMATION
  Report Type: 
  Country: None (occurrence: None)
  Receive Date: 20060918
  Receipt Date: 20051221
  Transmission Date: 20070319
  Serious: Yes (Other)
  Sender: FDA-Public Use
  Company Number: US-JNJFOC-20050901455

PATIENT
  Age: 29 Year
  Sex: Female
  Weight: 78.0187 kg

DRUGS (2)
  1. TOPAMAX [Suspect]
     Indication: MIGRAINE PROPHYLAXIS
     Dosage: 50 MG, 1 IN 1 DAY
     Dates: start: 20050803
  2. SUDAFED 12 HOUR [Concomitant]

REACTIONS (4)
  - HALLUCINATION [None]
  - PSYCHOMOTOR HYPERACTIVITY [None]
  - PSYCHOTIC DISORDER [None]
  - TACHYCARDIA [None]
